FAERS Safety Report 5099317-X (Version None)
Quarter: 2006Q3

REPORT INFORMATION
  Report Type: 
  Country: None (occurrence: None)
  Receive Date: 20060727
  Receipt Date: 20060420
  Transmission Date: 20061208
  Serious: No
  Sender: FDA-Public Use
  Company Number: FACT0600227

PATIENT
  Age: 55 Year
  Sex: Female
  Weight: 60.3 kg

DRUGS (8)
  1. FACTIVE [Suspect]
     Indication: RESPIRATORY TRACT INFECTION BACTERIAL
     Dosage: 320 MG, QD, ORAL
     Route: 048
     Dates: start: 20060410, end: 20060416
  2. LEVAQUIN [Suspect]
     Indication: BRONCHITIS ACUTE
     Dosage: QD, ORAL
     Route: 048
  3. PREDNISONE TAB [Suspect]
     Indication: BRONCHITIS ACUTE
     Dosage: SEE IMAGE
     Route: 048
     Dates: start: 20060403, end: 20060405
  4. PREDNISONE TAB [Suspect]
     Indication: BRONCHITIS ACUTE
     Dosage: SEE IMAGE
     Route: 048
     Dates: start: 20060406, end: 20060408
  5. PREDNISONE TAB [Suspect]
     Indication: BRONCHITIS ACUTE
     Dosage: SEE IMAGE
     Route: 048
     Dates: start: 20060409, end: 20060411
  6. PREDNISONE TAB [Suspect]
     Indication: BRONCHITIS ACUTE
     Dosage: SEE IMAGE
     Route: 048
     Dates: start: 20060412, end: 20060414
  7. PROVENTIL (SALBUTAMOL SULFATE) INHALER [Concomitant]
  8. COUGH SYRUP (ANTIMONY POTASSIUM TARTRATE, PAPAVER SOMNIFERUM TINCTURE, [Concomitant]

REACTIONS (1)
  - RASH GENERALISED [None]
